FAERS Safety Report 10189715 (Version 5)
Quarter: 2019Q4

REPORT INFORMATION
  Report Type: Spontaneous
  Country: US (occurrence: US)
  Receive Date: 20140522
  Receipt Date: 20191126
  Transmission Date: 20200122
  Serious: Yes (Hospitalization, Other)
  Sender: FDA-Public Use
  Company Number: US-SANOFI-AVENTIS-2012SA053835

PATIENT
  Age: 85 Year
  Sex: Male

DRUGS (5)
  1. LANTUS [Suspect]
     Active Substance: INSULIN GLARGINE
     Dosage: 45 U, QD
     Route: 065
  2. LANTUS [Suspect]
     Active Substance: INSULIN GLARGINE
     Dosage: 18 DF,BID
     Route: 058
  3. CITALOPRAM HYDROBROMIDE. [Suspect]
     Active Substance: CITALOPRAM HYDROBROMIDE
     Dosage: 10 MG, UNK
     Route: 065
  4. LANTUS [Suspect]
     Active Substance: INSULIN GLARGINE
     Indication: TYPE 2 DIABETES MELLITUS
     Dosage: 60 DF,QD
     Route: 058
     Dates: start: 201112
  5. LANTUS [Suspect]
     Active Substance: INSULIN GLARGINE
     Dosage: 50 DF,QD
     Route: 065
     Dates: start: 201208

REACTIONS (6)
  - Loss of consciousness [Not Recovered/Not Resolved]
  - Head injury [Not Recovered/Not Resolved]
  - Product use issue [Unknown]
  - Glycosylated haemoglobin increased [Unknown]
  - Blood glucose decreased [Not Recovered/Not Resolved]
  - Cold sweat [Not Recovered/Not Resolved]
